FAERS Safety Report 18765766 (Version 2)
Quarter: 2021Q3

REPORT INFORMATION
  Report Type: Spontaneous
  Country: JP (occurrence: JP)
  Receive Date: 20210120
  Receipt Date: 20210929
  Transmission Date: 20211014
  Serious: Yes (Other)
  Sender: FDA-Public Use
  Company Number: JP-GILEAD-2021-0513108

PATIENT
  Age: 61 Year
  Sex: Male
  Weight: 68 kg

DRUGS (23)
  1. VEKLURY [Suspect]
     Active Substance: REMDESIVIR
     Indication: COVID-19
     Dosage: 200 MG, QD
     Route: 041
     Dates: start: 20200113, end: 20200113
  2. PROPOFOL. [Concomitant]
     Active Substance: PROPOFOL
     Dosage: 4500 MG, QD
     Route: 042
     Dates: start: 20210114, end: 20210118
  3. MIYA?BM [Concomitant]
     Active Substance: CLOSTRIDIUM BUTYRICUM SPORES STRAIN M-55
     Indication: GASTROINTESTINAL DISORDER PROPHYLAXIS
     Dosage: 1 G, TID
     Route: 048
     Dates: start: 20210113
  4. TRAZODONE HYDROCHLORIDE. [Concomitant]
     Active Substance: TRAZODONE HYDROCHLORIDE
     Indication: PROPHYLAXIS
     Dosage: 25 MG, QD
     Route: 048
     Dates: start: 20210115, end: 20210201
  5. HEPARIN SODIUM. [Concomitant]
     Active Substance: HEPARIN SODIUM
     Indication: THROMBOSIS PROPHYLAXIS
     Dosage: 20000 IU, QD
     Route: 042
     Dates: start: 20210113, end: 20210114
  6. HEPARIN SODIUM. [Concomitant]
     Active Substance: HEPARIN SODIUM
     Dosage: 10000 IU INTERNATIONAL UNIT(S), QD
     Route: 042
     Dates: start: 20210115
  7. VEKLURY [Suspect]
     Active Substance: REMDESIVIR
     Dosage: 100 MG, QD
     Route: 041
     Dates: start: 20200114, end: 20200114
  8. ACELIO [Concomitant]
     Active Substance: ACETAMINOPHEN
     Indication: COVID-19
     Dosage: 1000 MG, QD
     Route: 042
     Dates: start: 20210113, end: 20210114
  9. SOLACET F [Concomitant]
     Active Substance: CALCIUM CHLORIDE\POTASSIUM CHLORIDE\SODIUM ACETATE\SODIUM CHLORIDE
     Dosage: 1000 ML, QD
     Route: 042
     Dates: start: 20210113, end: 20210113
  10. FENTANYL. [Concomitant]
     Active Substance: FENTANYL
     Indication: ANALGESIC THERAPY
     Dosage: 1.1 MG, QD
     Route: 042
     Dates: start: 20210113, end: 20210113
  11. ONOACT [Concomitant]
     Active Substance: LANDIOLOL HYDROCHLORIDE
     Indication: ATRIAL FIBRILLATION
     Dosage: 450 MG, QD
     Route: 042
     Dates: start: 20210115, end: 20210128
  12. SYMPROIC [Concomitant]
     Active Substance: NALDEMEDINE
     Indication: CONSTIPATION
     Dosage: 0.2 MG, QD
     Route: 048
     Dates: start: 20210113
  13. BELSOMRA [Concomitant]
     Active Substance: SUVOREXANT
     Indication: INSOMNIA
     Dosage: 20 MG, QD
     Route: 048
     Dates: start: 20210115, end: 20210201
  14. PROPOFOL. [Concomitant]
     Active Substance: PROPOFOL
     Indication: SEDATIVE THERAPY
     Dosage: 40000 MG, QD
     Route: 042
     Dates: start: 20210113, end: 20210113
  15. GASCON [DIMETICONE] [Concomitant]
     Indication: FLATULENCE
     Dosage: 40 MG, TID
     Route: 048
     Dates: start: 20210113
  16. NOVORAPID [Concomitant]
     Active Substance: INSULIN ASPART
     Indication: DIABETES MELLITUS
     Dosage: UNK
     Route: 058
     Dates: start: 20210113
  17. ESLAX [Concomitant]
     Active Substance: ROCURONIUM BROMIDE
     Indication: MUSCLE RELAXANT THERAPY
     Dosage: 550 MG, QD
     Route: 042
     Dates: start: 20210113, end: 20210113
  18. TAKEPRON [Concomitant]
     Active Substance: LANSOPRAZOLE
     Indication: PROPHYLAXIS AGAINST GASTROINTESTINAL ULCER
     Dosage: 60 MG, QD
     Route: 042
     Dates: start: 20210113
  19. SOLACET F [Concomitant]
     Active Substance: CALCIUM CHLORIDE\POTASSIUM CHLORIDE\SODIUM ACETATE\SODIUM CHLORIDE
     Indication: ELECTROLYTE SUBSTITUTION THERAPY
     Dosage: 500 MG, QD
     Route: 042
     Dates: start: 20210112, end: 20210112
  20. FENTANYL. [Concomitant]
     Active Substance: FENTANYL
     Dosage: 2.0 MG, QD
     Route: 042
     Dates: start: 20210114, end: 20210119
  21. DEXMEDETOMIDINE. [Concomitant]
     Active Substance: DEXMEDETOMIDINE
     Indication: SEDATIVE THERAPY
     Dosage: 800 UG, QD
     Route: 042
     Dates: start: 20210113, end: 20210126
  22. MAGMITT [Concomitant]
     Active Substance: MAGNESIUM OXIDE
     Indication: CONSTIPATION
     Dosage: 330 MG, TID
     Route: 048
     Dates: start: 20210113
  23. ESLAX [Concomitant]
     Active Substance: ROCURONIUM BROMIDE
     Dosage: 350 MG, QD
     Route: 042
     Dates: start: 20210114, end: 20210114

REACTIONS (1)
  - Hepatic function abnormal [Recovered/Resolved]

NARRATIVE: CASE EVENT DATE: 20210115
